FAERS Safety Report 6426242-1 (Version None)
Quarter: 2009Q4

REPORT INFORMATION
  Report Type: 
  Country: None (occurrence: None)
  Receive Date: 20091104
  Receipt Date: 20091030
  Transmission Date: 20100525
  Serious: Yes (Hospitalization)
  Sender: FDA-Public Use
  Company Number: US-BRISTOL-MYERS SQUIBB COMPANY-14780480

PATIENT
  Age: 60 Year
  Sex: Male
  Weight: 66 kg

DRUGS (14)
  1. IXABEPILONE [Suspect]
     Indication: NON-SMALL CELL LUNG CANCER
     Dosage: OVER 3 HRS DOSE 44MG
     Route: 042
     Dates: start: 20090901, end: 20091013
  2. CARBOPLATIN [Suspect]
     Indication: NON-SMALL CELL LUNG CANCER
     Dosage: 1 DF = AUC 5; OVER 30-60MINS; DOSE 477 MG
     Route: 042
     Dates: start: 20090901, end: 20091013
  3. AVASTIN [Suspect]
     Indication: NON-SMALL CELL LUNG CANCER
     Dosage: OVER 90MINS; DOSE 951 MG
     Route: 042
     Dates: start: 20090901, end: 20091013
  4. PROTONIX [Concomitant]
     Dosage: 40MG/D
     Route: 048
     Dates: start: 20090827
  5. PRAVASTATIN [Concomitant]
     Dates: start: 20090827
  6. ASPIRIN [Concomitant]
     Dates: start: 20090827
  7. NITROGLYCERIN [Concomitant]
     Indication: CHEST PAIN
     Dates: start: 20090827
  8. METOPROLOL [Concomitant]
     Dosage: 1/2TABS
     Dates: start: 20090827, end: 20090911
  9. FLORINEF [Concomitant]
  10. ATIVAN [Concomitant]
     Dosage: Q6HRS
  11. LISINOPRIL [Concomitant]
  12. HYCODAN [Concomitant]
     Dosage: 4-6HRS
  13. PHENERGAN HCL [Concomitant]
     Dosage: 6-8HRS
  14. ZOFRAN [Concomitant]
     Dosage: Q8 HOURS

REACTIONS (3)
  - DEHYDRATION [None]
  - HYPOTENSION [None]
  - HYPOVOLAEMIA [None]
